FAERS Safety Report 20336147 (Version 1)
Quarter: 2022Q1

REPORT INFORMATION
  Report Type: Spontaneous
  Country: CA (occurrence: None)
  Receive Date: 20220114
  Receipt Date: 20220114
  Transmission Date: 20220423
  Serious: Yes (Hospitalization)
  Sender: FDA-Public Use
  Company Number: CA-ROCHE-2998920

PATIENT
  Age: 58 Year
  Sex: Female

DRUGS (7)
  1. RITUXIMAB [Suspect]
     Active Substance: RITUXIMAB
     Indication: Product used for unknown indication
     Route: 065
  2. CYANOCOBALAMIN [Concomitant]
     Active Substance: CYANOCOBALAMIN
  3. DIPHENHYDRAMINE [Concomitant]
     Active Substance: DIPHENHYDRAMINE
  4. METHYLPREDNISOLONE [Concomitant]
     Active Substance: METHYLPREDNISOLONE
  5. PANTOPRAZOLE [Concomitant]
     Active Substance: PANTOPRAZOLE
  6. PREDNISONE [Concomitant]
     Active Substance: PREDNISONE
  7. ACETAMINOPHEN [Concomitant]
     Active Substance: ACETAMINOPHEN

REACTIONS (6)
  - Asthenia [Not Recovered/Not Resolved]
  - Bronchiolitis [Not Recovered/Not Resolved]
  - Dyspnoea [Not Recovered/Not Resolved]
  - Fatigue [Not Recovered/Not Resolved]
  - Intentional product use issue [Unknown]
  - Off label use [Unknown]
